FAERS Safety Report 5323321-7 (Version None)
Quarter: 2007Q1

REPORT INFORMATION
  Report Type: 
  Country: None (occurrence: None)
  Receive Date: 20070223
  Receipt Date: 20060315
  Transmission Date: 20070707
  Serious: Yes (Other)
  Sender: FDA-Public Use
  Company Number: WAES 0504USA03669

PATIENT
  Age: 71 Year
  Sex: Female
  Weight: 73.4827 kg

DRUGS (7)
  1. ZOCOR [Suspect]
     Indication: HYPERCHOLESTEROLAEMIA
     Dosage: SEE IMAGE
     Route: 048
     Dates: start: 20030101, end: 20040731
  2. ZOCOR [Suspect]
     Indication: HYPERCHOLESTEROLAEMIA
     Dosage: SEE IMAGE
     Route: 048
     Dates: start: 20040801, end: 20040816
  3. ACTONEL [Concomitant]
  4. AVANDIA [Concomitant]
  5. TARKA [Concomitant]
  6. GLYBURIDE [Concomitant]
  7. HYDROCHLOROTHIAZIDE [Concomitant]

REACTIONS (4)
  - BLOOD CREATINE PHOSPHOKINASE INCREASED [None]
  - HEPATITIS [None]
  - MUSCLE SPASMS [None]
  - MYALGIA [None]
